FAERS Safety Report 7953317-8 (Version None)
Quarter: 2011Q4

REPORT INFORMATION
  Report Type: 
  Country: None (occurrence: None)
  Receive Date: 20111202
  Receipt Date: 20111121
  Transmission Date: 20120403
  Serious: Yes (Death, Hospitalization, Other)
  Sender: FDA-Public Use
  Company Number: GB-RANBAXY-2011R1-47740

PATIENT
  Age: 20 Year
  Sex: Male

DRUGS (5)
  1. IRON [Interacting]
     Indication: PRODUCT USED FOR UNKNOWN INDICATION
     Dosage: UNK
     Route: 048
  2. LOPERAMIDE HCL [Interacting]
     Indication: PRODUCT USED FOR UNKNOWN INDICATION
     Dosage: UNK
     Route: 048
  3. ACETAMINOPHEN [Interacting]
     Indication: PRODUCT USED FOR UNKNOWN INDICATION
     Dosage: UNK
     Route: 048
  4. AMOXICILLIN [Suspect]
     Indication: PRODUCT USED FOR UNKNOWN INDICATION
     Dosage: UNK
     Route: 048
  5. ERYTHROMYCIN [Interacting]
     Indication: PRODUCT USED FOR UNKNOWN INDICATION
     Dosage: UNK
     Route: 048

REACTIONS (13)
  - TOXICITY TO VARIOUS AGENTS [None]
  - CHOLESTASIS [None]
  - BRAIN OEDEMA [None]
  - AMMONIA INCREASED [None]
  - BRAIN HERNIATION [None]
  - COMPLETED SUICIDE [None]
  - HEPATIC NECROSIS [None]
  - SEPSIS [None]
  - DRUG INTERACTION [None]
  - MULTIPLE DRUG OVERDOSE INTENTIONAL [None]
  - ACUTE HEPATIC FAILURE [None]
  - PUPILLARY DISORDER [None]
  - LIVER INJURY [None]
